FAERS Safety Report 4449381-3 (Version None)
Quarter: 2004Q3

REPORT INFORMATION
  Report Type: 
  Country: None (occurrence: None)
  Receive Date: 20040913
  Receipt Date: 20040831
  Transmission Date: 20050211
  Serious: Yes (Congenital Anomaly, Other)
  Sender: FDA-Public Use
  Company Number: 2004061468

PATIENT
  Sex: Female

DRUGS (3)
  1. DILANTIN [Suspect]
     Indication: CONVULSION
     Dosage: SEE IMAGE
     Dates: start: 19940630
  2. PHENOBARBITAL TAB [Suspect]
     Indication: ILL-DEFINED DISORDER
     Dates: end: 19940601
  3. ATOMOXETINE HYDROCHLORIDE (ATOMOXETINE HYDROCHLORIDE) [Concomitant]

REACTIONS (15)
  - ABNORMAL BEHAVIOUR [None]
  - ANXIETY [None]
  - ATTENTION DEFICIT/HYPERACTIVITY DISORDER [None]
  - CONGENITAL GENITAL MALFORMATION FEMALE [None]
  - DRUG EXPOSURE DURING PREGNANCY [None]
  - DRUG EXPOSURE VIA BREAST MILK [None]
  - HEARING IMPAIRED [None]
  - HYPERSENSITIVITY [None]
  - MILK ALLERGY [None]
  - MIXED RECEPTIVE-EXPRESSIVE LANGUAGE DISORDER [None]
  - PREGNANCY [None]
  - SKIN DISORDER [None]
  - SLEEP APNOEA SYNDROME [None]
  - VISUAL ACUITY REDUCED [None]
  - VOMITING [None]
